FAERS Safety Report 10230293 (Version 2)
Quarter: 2014Q2

REPORT INFORMATION
  Report Type: Report from Study
  Country: US (occurrence: US)
  Receive Date: 20140611
  Receipt Date: 20140611
  Transmission Date: 20141212
  Serious: Yes (Death, Other)
  Sender: FDA-Public Use
  Company Number: US-MERCK-1101USA03463

PATIENT
  Age: 68 Year
  Sex: 0

DRUGS (2)
  1. DECADRON ELIXIR [Suspect]
     Indication: PLASMA CELL MYELOMA
     Dosage: 40 MG, D1,8,15,Q21
     Route: 048
     Dates: start: 20110104, end: 20110114
  2. VELCADE [Suspect]
     Indication: PLASMA CELL MYELOMA
     Dosage: DOSE 1.3 UNTS, D1,4,8,11,Q21
     Route: 042
     Dates: start: 20110104, end: 20110114

REACTIONS (3)
  - Emphysema [Fatal]
  - Adverse event [Unknown]
  - Plasma cell myeloma [Fatal]
